FAERS Safety Report 17641981 (Version 2)
Quarter: 2020Q2

REPORT INFORMATION
  Report Type: Spontaneous
  Country: US (occurrence: US)
  Receive Date: 20200408
  Receipt Date: 20200514
  Transmission Date: 20200713
  Serious: No
  Sender: FDA-Public Use
  Company Number: US-KARYOPHARM-2020KPT000167

PATIENT

DRUGS (6)
  1. XPOVIO [Suspect]
     Active Substance: SELINEXOR
     Indication: PLASMA CELL MYELOMA
     Dosage: 60 MG, 2X/WEEK
     Dates: start: 20200210
  2. DEXAMETHASONE. [Concomitant]
     Active Substance: DEXAMETHASONE
     Indication: NAUSEA
  3. ALOXI [Concomitant]
     Active Substance: PALONOSETRON HYDROCHLORIDE
     Indication: NAUSEA
  4. SANCUSO [Concomitant]
     Active Substance: GRANISETRON
     Indication: NAUSEA
  5. ZOFRAN [Concomitant]
     Active Substance: ONDANSETRON HYDROCHLORIDE
     Indication: NAUSEA
  6. XPOVIO [Suspect]
     Active Substance: SELINEXOR
     Dosage: 40 MG, 2X/WEEK
     Route: 048

REACTIONS (8)
  - Taste disorder [Unknown]
  - Anaemia [Unknown]
  - Cardiac murmur [Unknown]
  - Decreased appetite [Unknown]
  - Weight decreased [Not Recovered/Not Resolved]
  - Cataract [Unknown]
  - Nausea [Recovered/Resolved]
  - Intentional dose omission [Unknown]

NARRATIVE: CASE EVENT DATE: 202002
